FAERS Safety Report 8137423-3 (Version None)
Quarter: 2012Q1

REPORT INFORMATION
  Report Type: 
  Country: None (occurrence: None)
  Receive Date: 20120103
  Receipt Date: 20110903
  Transmission Date: 20120608
  Serious: No
  Sender: FDA-Public Use
  Company Number: AE-2011-001342

PATIENT
  Age: 56 Year
  Sex: Female
  Weight: 70.3075 kg

DRUGS (5)
  1. PEG-INTERFERON (PEGINTERFERON ALFA-2A) [Concomitant]
  2. ANTI-NAUSEA PILL [Concomitant]
  3. INCIVEK [Suspect]
     Dosage: (3 IN 1 D)
     Dates: start: 20110819
  4. RIBAVIRIN [Concomitant]
  5. PROCRIT [Concomitant]

REACTIONS (3)
  - NAUSEA [None]
  - VOMITING [None]
  - ANAEMIA [None]
